FAERS Safety Report 5491130-4 (Version None)
Quarter: 2007Q4

REPORT INFORMATION
  Report Type: 
  Country: None (occurrence: None)
  Receive Date: 20071019
  Receipt Date: 20071010
  Transmission Date: 20080405
  Serious: Yes (Hospitalization, Other)
  Sender: FDA-Public Use
  Company Number: DK-ABBOTT-07P-044-0420364-00

PATIENT
  Sex: Female

DRUGS (2)
  1. HUMIRA [Suspect]
     Indication: SPONDYLOARTHROPATHY
     Route: 058
     Dates: start: 20070201, end: 20070925
  2. CONTRACEPTIVES NOS [Concomitant]
     Indication: CONTRACEPTION
     Dates: end: 20070708

REACTIONS (1)
  - OVARIAN CYST RUPTURED [None]
